FAERS Safety Report 8535006 (Version 2)
Quarter: 2012Q4

REPORT INFORMATION
  Report Type: 
  Country: US (occurrence: US)
  Receive Date: 20120427
  Receipt Date: 20121205
  Transmission Date: 20130627
  Serious: Yes (Hospitalization)
  Sender: FDA-Public Use
  Company Number: US-BAYER-2012-039343

PATIENT
  Age: 39 Year
  Sex: Female
  Weight: 83.9 kg

DRUGS (7)
  1. YAZ [Suspect]
     Indication: ACNE
     Dosage: UNK
     Route: 048
     Dates: start: 201101, end: 201103
  2. YAZ [Suspect]
     Indication: CONTRACEPTION
  3. BEYAZ [Suspect]
     Indication: ACNE
  4. IMITREX [Concomitant]
     Dosage: UNK
     Dates: start: 2000, end: 2012
  5. TORADOL [Concomitant]
     Dosage: UNK
     Dates: start: 2000, end: 2012
  6. PAXIL [Concomitant]
  7. MIRALAX [Concomitant]

REACTIONS (5)
  - Pulmonary embolism [None]
  - Injury [None]
  - Pain [None]
  - Dyspnoea [None]
  - Palpitations [None]
